FAERS Safety Report 20433869 (Version 2)
Quarter: 2022Q1

REPORT INFORMATION
  Report Type: Spontaneous
  Country: US (occurrence: US)
  Receive Date: 20220205
  Receipt Date: 20220211
  Transmission Date: 20220423
  Serious: No
  Sender: FDA-Public Use
  Company Number: US-SANOFI-00954702

PATIENT
  Age: 71 Year
  Sex: Female

DRUGS (1)
  1. TOUJEO MAX [Suspect]
     Active Substance: INSULIN GLARGINE
     Indication: Type 2 diabetes mellitus
     Dosage: 86 IU, QD
     Route: 065
     Dates: start: 2020

REACTIONS (3)
  - Memory impairment [Unknown]
  - Dialysis [Unknown]
  - Product storage error [Unknown]

NARRATIVE: CASE EVENT DATE: 20220127
